FAERS Safety Report 6500432-1 (Version None)
Quarter: 2009Q4

REPORT INFORMATION
  Report Type: 
  Country: None (occurrence: None)
  Receive Date: 20091216
  Receipt Date: 20091214
  Transmission Date: 20100525
  Serious: Yes (Other)
  Sender: FDA-Public Use
  Company Number: NL-ROCHE-668224

PATIENT

DRUGS (4)
  1. AVASTIN [Suspect]
     Dosage: DOSE FROM INFUSION.
     Route: 042
     Dates: start: 20090101
  2. AVASTIN [Suspect]
     Dosage: LOWERED DOSE
     Route: 042
     Dates: start: 20091101
  3. GEMCITABINE [Concomitant]
     Dates: start: 20090101
  4. CISPLATIN [Concomitant]
     Dates: start: 20090101

REACTIONS (1)
  - ALANINE AMINOTRANSFERASE INCREASED [None]
